FAERS Safety Report 8222159-0 (Version None)
Quarter: 2012Q1

REPORT INFORMATION
  Report Type: 
  Country: None (occurrence: None)
  Receive Date: 20120320
  Receipt Date: 20120315
  Transmission Date: 20120608
  Serious: Yes (Death)
  Sender: FDA-Public Use
  Company Number: US-JNJFOC-20120308610

PATIENT
  Age: 63 Year
  Sex: Male

DRUGS (3)
  1. IMODIUM A-D [Suspect]
     Indication: DIARRHOEA
     Route: 048
  2. CHEMOTHERAPY [Concomitant]
     Indication: LUNG NEOPLASM MALIGNANT
     Route: 065
  3. IMODIUM A-D [Suspect]
     Route: 048

REACTIONS (2)
  - EXPIRED DRUG ADMINISTERED [None]
  - LUNG NEOPLASM MALIGNANT [None]
